FAERS Safety Report 9700867 (Version 2)
Quarter: 2014Q1

REPORT INFORMATION
  Report Type: Spontaneous
  Country: US (occurrence: US)
  Receive Date: 20131121
  Receipt Date: 20140116
  Transmission Date: 20141002
  Serious: Yes (Hospitalization, Disabling)
  Sender: FDA-Public Use
  Company Number: US-009507513-1311USA007574

PATIENT
  Age: 80 Year
  Sex: Female

DRUGS (2)
  1. INVANZ [Suspect]
     Indication: KIDNEY INFECTION
     Dosage: UNK
     Route: 042
  2. INVANZ [Suspect]
     Dosage: UNK
     Route: 042
     Dates: start: 20131110

REACTIONS (3)
  - Asthenia [Recovering/Resolving]
  - Muscle fatigue [Not Recovered/Not Resolved]
  - Asthenia [Not Recovered/Not Resolved]
